FAERS Safety Report 24095618 (Version 1)
Quarter: 2024Q3

REPORT INFORMATION
  Report Type: Spontaneous
  Country: US (occurrence: None)
  Receive Date: 20240714
  Receipt Date: 20240714
  Transmission Date: 20241017
  Serious: Yes (Other)
  Sender: Public
  Company Number: None

PATIENT
  Age: 26 Year
  Sex: Female
  Weight: 86.18 kg

DRUGS (1)
  1. MIRENA [Suspect]
     Active Substance: LEVONORGESTREL

REACTIONS (12)
  - Complication of device insertion [None]
  - Complication of device removal [None]
  - Vulvovaginal pain [None]
  - Fear [None]
  - Hyperhidrosis [None]
  - Nausea [None]
  - Dizziness [None]
  - Mental disorder [None]
  - Crying [None]
  - Tremor [None]
  - Blood pressure increased [None]
  - Panic attack [None]

NARRATIVE: CASE EVENT DATE: 20191115
